FAERS Safety Report 16100138 (Version 1)
Quarter: 2019Q1

REPORT INFORMATION
  Report Type: Report from Study
  Country: BR (occurrence: BR)
  Receive Date: 20190321
  Receipt Date: 20190321
  Transmission Date: 20190418
  Serious: Yes (Hospitalization, Other)
  Sender: FDA-Public Use
  Company Number: BR-JNJFOC-20190307445

PATIENT
  Age: 22 Year
  Sex: Male

DRUGS (3)
  1. XARELTO [Suspect]
     Active Substance: RIVAROXABAN
     Indication: HYPERCOAGULATION
     Route: 048
     Dates: start: 2014, end: 20190119
  2. NORFLOXACIN [Concomitant]
     Active Substance: NORFLOXACIN
     Indication: INFLUENZA
     Route: 065
     Dates: start: 201810, end: 201811
  3. XARELTO [Suspect]
     Active Substance: RIVAROXABAN
     Indication: THROMBOSIS
     Route: 048
     Dates: start: 2014, end: 20190119

REACTIONS (3)
  - Cerebral thrombosis [Not Recovered/Not Resolved]
  - Neurological symptom [Not Recovered/Not Resolved]
  - Blindness [Recovered/Resolved]

NARRATIVE: CASE EVENT DATE: 201901
